FAERS Safety Report 7691462-5 (Version None)
Quarter: 2011Q3

REPORT INFORMATION
  Report Type: 
  Country: None (occurrence: None)
  Receive Date: 20110818
  Receipt Date: 20110816
  Transmission Date: 20111222
  Serious: Yes (Life-Threatening, Other)
  Sender: FDA-Public Use
  Company Number: PHHY2011AU46832

PATIENT
  Sex: Female

DRUGS (3)
  1. CLOZAPINE [Suspect]
     Dosage: 200 MG
     Route: 048
     Dates: start: 19980121
  2. CLOZAPINE [Suspect]
     Dosage: 150 MG,
     Dates: start: 20110615
  3. CLOZAPINE [Suspect]
     Dosage: 300 MG, NOCTE
     Route: 048
     Dates: start: 20110816

REACTIONS (5)
  - NEUTROPHIL COUNT DECREASED [None]
  - KIDNEY INFECTION [None]
  - WHITE BLOOD CELL COUNT DECREASED [None]
  - VOMITING [None]
  - CYTOMEGALOVIRUS TEST POSITIVE [None]
